FAERS Safety Report 24427777 (Version 4)
Quarter: 2024Q4

REPORT INFORMATION
  Report Type: Spontaneous
  Country: US (occurrence: US)
  Receive Date: 20241011
  Receipt Date: 20241216
  Transmission Date: 20250114
  Serious: Yes (Hospitalization)
  Sender: KARYOPHARM THERAPEUTICS
  Company Number: US-KARYOPHARM-2024KPT001625

PATIENT

DRUGS (13)
  1. XPOVIO [Suspect]
     Active Substance: SELINEXOR
     Indication: Plasma cell myeloma refractory
     Dosage: 60 MG, WEEKLY
     Route: 048
     Dates: start: 20240926, end: 2024
  2. XPOVIO [Suspect]
     Active Substance: SELINEXOR
     Dosage: 60 MG, WEEKLY
     Route: 048
     Dates: start: 2024
  3. DULOXETINE [Concomitant]
     Active Substance: DULOXETINE
  4. ACYCLOVIR [Concomitant]
     Active Substance: ACYCLOVIR
  5. ONDANSETRON [Concomitant]
     Active Substance: ONDANSETRON
  6. COLCHICINE [Concomitant]
     Active Substance: COLCHICINE
  7. AMLODIPINE BESYLATE [Concomitant]
     Active Substance: AMLODIPINE BESYLATE
  8. ATORVASTATIN CALCIUM [Concomitant]
     Active Substance: ATORVASTATIN CALCIUM
  9. SERTRALINE HYDROCHLORIDE [Concomitant]
     Active Substance: SERTRALINE HYDROCHLORIDE
  10. VENTOLIN HFA [Concomitant]
     Active Substance: ALBUTEROL SULFATE
  11. GABAPENTIN [Concomitant]
     Active Substance: GABAPENTIN
  12. BENZONATATE [Concomitant]
     Active Substance: BENZONATATE
  13. POMALYST [Concomitant]
     Active Substance: POMALIDOMIDE
     Indication: Plasma cell myeloma refractory
     Dosage: 4 MG, QD, FOR 21 DAYS ON THEN 7 DAYS OFF
     Route: 048

REACTIONS (11)
  - Fall [Unknown]
  - Upper limb fracture [Unknown]
  - Pneumonia [Not Recovered/Not Resolved]
  - Pain [Unknown]
  - Cough [Not Recovered/Not Resolved]
  - White blood cell count decreased [Unknown]
  - Rib fracture [Not Recovered/Not Resolved]
  - Back pain [Not Recovered/Not Resolved]
  - Platelet count decreased [Unknown]
  - Nausea [Not Recovered/Not Resolved]
  - Vomiting [Not Recovered/Not Resolved]

NARRATIVE: CASE EVENT DATE: 20240101
